FAERS Safety Report 17012275 (Version 1)
Quarter: 2019Q4

REPORT INFORMATION
  Report Type: Report from Study
  Country: GB (occurrence: GB)
  Receive Date: 20191108
  Receipt Date: 20191108
  Transmission Date: 20200122
  Serious: Yes (Death, Other)
  Sender: FDA-Public Use
  Company Number: GB-ROCHE-2457392

PATIENT
  Age: 70 Year

DRUGS (2)
  1. OXALIPLATIN. [Concomitant]
     Active Substance: OXALIPLATIN
     Indication: MALIGNANT PERITONEAL NEOPLASM
     Route: 065
  2. CAPECITABINE. [Suspect]
     Active Substance: CAPECITABINE
     Indication: MALIGNANT PERITONEAL NEOPLASM
     Route: 048

REACTIONS (4)
  - Off label use [Unknown]
  - Disease progression [Fatal]
  - Deep vein thrombosis [Unknown]
  - Intentional product use issue [Unknown]
